FAERS Safety Report 16236061 (Version 1)
Quarter: 2019Q2

REPORT INFORMATION
  Report Type: Spontaneous
  Country: US (occurrence: US)
  Receive Date: 20190425
  Receipt Date: 20190425
  Transmission Date: 20190711
  Serious: No
  Sender: FDA-Public Use
  Company Number: US-ACCORD-106919

PATIENT
  Age: 84 Year
  Sex: Male

DRUGS (9)
  1. WARFARIN [Concomitant]
     Active Substance: WARFARIN
  2. TELMISARTAN. [Concomitant]
     Active Substance: TELMISARTAN
  3. AMLODIPINE [Concomitant]
     Active Substance: AMLODIPINE BESYLATE
  4. ATORVASTATIN/ATORVASTATIN CALCIUM [Suspect]
     Active Substance: ATORVASTATIN CALCIUM
     Indication: BLOOD CHOLESTEROL INCREASED
     Dosage: STRENGTH: 80 MG
     Route: 048
     Dates: start: 201812
  5. CARVEDILOL/CARVEDILOL HYDROCHLODRIDE [Concomitant]
  6. POTASSIUM [Concomitant]
     Active Substance: POTASSIUM
  7. HYDRALAZINE [Concomitant]
     Active Substance: HYDRALAZINE HYDROCHLORIDE
  8. FUROSEMIDE. [Concomitant]
     Active Substance: FUROSEMIDE
  9. TAMSULOSIN [Concomitant]
     Active Substance: TAMSULOSIN

REACTIONS (3)
  - Retching [Not Recovered/Not Resolved]
  - Product taste abnormal [Unknown]
  - Wrong technique in product usage process [Unknown]
